FAERS Safety Report 8987382 (Version 1)
Quarter: 2012Q4

REPORT INFORMATION
  Report Type: 
  Country: GR (occurrence: GR)
  Receive Date: 20121226
  Receipt Date: 20121226
  Transmission Date: 20130627
  Serious: Yes (Hospitalization)
  Sender: FDA-Public Use
  Company Number: GR-ABBOTT-12P-066-1026185-00

PATIENT
  Age: 68 Year
  Sex: Male

DRUGS (1)
  1. VALPROIC ACID [Suspect]
     Indication: BIPOLAR DISORDER

REACTIONS (1)
  - Salivary gland enlargement [Unknown]
